FAERS Safety Report 17682488 (Version 4)
Quarter: 2020Q2

REPORT INFORMATION
  Report Type: Report from Study
  Country: None (occurrence: NL)
  Receive Date: 20200418
  Receipt Date: 20200618
  Transmission Date: 20200714
  Serious: Yes (Hospitalization, Other)
  Sender: FDA-Public Use
  Company Number: NL-ABBVIE-19K-114-3201168-00

PATIENT
  Sex: Male

DRUGS (15)
  1. DUODOPA [Suspect]
     Active Substance: CARBIDOPA\LEVODOPA
     Dosage: MD 8.0 CD 6.0 ND 3.5 INCREASED THE EXTRA DOSE INCREASED FROM 3.0 ML TO 3.5 ML
     Route: 050
  2. MOVICOLON [Concomitant]
     Active Substance: POLYETHYLENE GLYCOL 3350\POTASSIUM CHLORIDE\SODIUM BICARBONATE\SODIUM CHLORIDE
     Indication: ABNORMAL FAECES
     Dosage: 3 SACHETS PER DAY
  3. MADOPAR DISPERSIBL [Concomitant]
     Active Substance: BENSERAZIDE HYDROCHLORIDE\LEVODOPA
     Indication: PARKINSON^S DISEASE
     Dosage: IF NEEDED IN CASE OF OFF COMPLAINTS
     Route: 048
  4. ENTACAPONE. [Concomitant]
     Active Substance: ENTACAPONE
     Indication: PARKINSON^S DISEASE
     Route: 048
  5. RIVASTIGMIN [Concomitant]
     Active Substance: RIVASTIGMINE
     Indication: PRODUCT USED FOR UNKNOWN INDICATION
  6. MACROGOL [Concomitant]
     Active Substance: POLYETHYLENE GLYCOLS
     Indication: ABNORMAL FAECES
  7. CLOZAPINE. [Concomitant]
     Active Substance: CLOZAPINE
     Indication: PRODUCT USED FOR UNKNOWN INDICATION
  8. DOMPERIDONE [Concomitant]
     Active Substance: DOMPERIDONE
     Indication: ABDOMINAL PAIN
  9. COMTAN [Concomitant]
     Active Substance: ENTACAPONE
     Indication: PRODUCT USED FOR UNKNOWN INDICATION
     Dates: end: 20200612
  10. DUODOPA [Suspect]
     Active Substance: CARBIDOPA\LEVODOPA
     Indication: PARKINSON^S DISEASE
     Dosage: MD 8.0 CD 6.0 ED 3.0 ND 3.5
     Route: 050
     Dates: start: 20160805
  11. MIRTAZAPINE. [Concomitant]
     Active Substance: MIRTAZAPINE
     Indication: PRODUCT USED FOR UNKNOWN INDICATION
  12. SIMVASTATIN. [Concomitant]
     Active Substance: SIMVASTATIN
     Indication: PRODUCT USED FOR UNKNOWN INDICATION
  13. PANTOPRAZOLE [Concomitant]
     Active Substance: PANTOPRAZOLE
     Indication: PRODUCT USED FOR UNKNOWN INDICATION
  14. DUODOPA [Suspect]
     Active Substance: CARBIDOPA\LEVODOPA
     Route: 050
  15. PARACETAMOL [Concomitant]
     Active Substance: ACETAMINOPHEN
     Indication: PRODUCT USED FOR UNKNOWN INDICATION
     Dosage: 1 AS REQUIRED

REACTIONS (47)
  - Constipation [Recovered/Resolved]
  - Device use issue [Unknown]
  - Wrong technique in device usage process [Not Recovered/Not Resolved]
  - Bedridden [Not Recovered/Not Resolved]
  - Emotional distress [Not Recovered/Not Resolved]
  - Muscle rigidity [Not Recovered/Not Resolved]
  - Decreased appetite [Not Recovered/Not Resolved]
  - Dyskinesia [Unknown]
  - Freezing phenomenon [Not Recovered/Not Resolved]
  - Unevaluable event [Not Recovered/Not Resolved]
  - Device alarm issue [Recovered/Resolved]
  - Device dislocation [Recovered/Resolved]
  - Device dislocation [Unknown]
  - Small intestinal perforation [Not Recovered/Not Resolved]
  - Urinary tract infection [Recovered/Resolved]
  - Disturbance in attention [Not Recovered/Not Resolved]
  - Cognitive disorder [Not Recovered/Not Resolved]
  - Gait disturbance [Not Recovered/Not Resolved]
  - Depression [Not Recovered/Not Resolved]
  - Hyperkinesia [Not Recovered/Not Resolved]
  - Loss of personal independence in daily activities [Not Recovered/Not Resolved]
  - Motor dysfunction [Not Recovered/Not Resolved]
  - Sepsis [Not Recovered/Not Resolved]
  - Device difficult to use [Unknown]
  - Hypersomnia [Not Recovered/Not Resolved]
  - Dyschezia [Recovered/Resolved]
  - Unevaluable event [Recovered/Resolved]
  - Pain [Not Recovered/Not Resolved]
  - Organic brain syndrome [Not Recovered/Not Resolved]
  - Device difficult to use [Recovered/Resolved]
  - Muscle spasms [Not Recovered/Not Resolved]
  - Confusional state [Not Recovered/Not Resolved]
  - Therapeutic product effect incomplete [Not Recovered/Not Resolved]
  - Abdominal distension [Unknown]
  - On and off phenomenon [Not Recovered/Not Resolved]
  - Malaise [Unknown]
  - Memory impairment [Not Recovered/Not Resolved]
  - Middle insomnia [Recovering/Resolving]
  - Abnormal behaviour [Not Recovered/Not Resolved]
  - Panic reaction [Recovered/Resolved]
  - Musculoskeletal stiffness [Not Recovered/Not Resolved]
  - Dystonia [Not Recovered/Not Resolved]
  - Weight decreased [Not Recovered/Not Resolved]
  - Abnormal dreams [Not Recovered/Not Resolved]
  - Abdominal pain [Recovering/Resolving]
  - Hallucination, visual [Not Recovered/Not Resolved]
  - Bradykinesia [Not Recovered/Not Resolved]
